FAERS Safety Report 6704579-6 (Version None)
Quarter: 2010Q2

REPORT INFORMATION
  Report Type: 
  Country: None (occurrence: None)
  Receive Date: 20100430
  Receipt Date: 20100429
  Transmission Date: 20101027
  Serious: Yes (Death, Hospitalization, Other)
  Sender: FDA-Public Use
  Company Number: PHHO2008US14334

PATIENT
  Sex: Male
  Weight: 67.5 kg

DRUGS (48)
  1. BLINDED ACZ885 ACZ+SOLINF+COPD [Suspect]
     Indication: CHRONIC OBSTRUCTIVE PULMONARY DISEASE
     Dosage: DOUBLE-BLIND
     Route: 042
     Dates: start: 20080910, end: 20090810
  2. BLINDED NO TREATMENT RECEIVED NOMED [Suspect]
     Indication: CHRONIC OBSTRUCTIVE PULMONARY DISEASE
     Dosage: DOUBLE-BLIND
     Route: 042
     Dates: start: 20080910, end: 20090810
  3. BLINDED PLACEBO COMP-PLA+ [Suspect]
     Indication: CHRONIC OBSTRUCTIVE PULMONARY DISEASE
     Dosage: DOUBLE-BLIND
     Route: 042
     Dates: start: 20080910, end: 20090810
  4. ADVAIR DISKUS 100/50 [Concomitant]
  5. SPIRIVA [Concomitant]
  6. INSULIN [Concomitant]
  7. ALBUTEROL [Concomitant]
  8. PEPTO-BISMOL [Concomitant]
  9. POTASSIUM CHLORIDE [Concomitant]
  10. FUROSEMIDE [Concomitant]
  11. GLYBURIDE [Concomitant]
  12. GUAIFENESIN [Concomitant]
  13. LORAZEPAM [Concomitant]
  14. FORADIL [Concomitant]
  15. THEOPHYLLINE [Concomitant]
  16. VITAMIN B-12 [Concomitant]
  17. HUMULIN R [Concomitant]
  18. METFORMIN [Concomitant]
  19. NEXIUM [Concomitant]
  20. CIPRO [Concomitant]
  21. ZYRTEC [Concomitant]
  22. NEO-SYNEPHRINOL [Concomitant]
  23. PREDNISONE [Concomitant]
  24. CEFTRIAXONE [Concomitant]
  25. ATROVENT [Concomitant]
  26. MOXIFLOXACIN HYDROCHLORIDE [Concomitant]
  27. SOLU-MEDROL [Concomitant]
  28. ACETAMINOPHEN [Concomitant]
  29. SODIUM CHLORIDE [Concomitant]
  30. ENOXAPARIN SODIUM [Concomitant]
  31. DOXYCYCLINE [Concomitant]
  32. DARVOCET-N 100 [Concomitant]
  33. COLACE [Concomitant]
  34. ACTOS [Concomitant]
  35. TUSSIONEX [Concomitant]
  36. MILK OF MAGNESIA TAB [Concomitant]
  37. ZOLPIDEM TARTRATE [Concomitant]
  38. ZOFRAN [Concomitant]
  39. PROTONIX [Concomitant]
  40. LOVENOX [Concomitant]
  41. IPRATROPIUM BROMIDE [Concomitant]
  42. AVELOX [Concomitant]
  43. AMBIEN [Concomitant]
  44. TYLENOL-500 [Concomitant]
  45. FENTANYL [Concomitant]
  46. METHYLPREDNISOLONE [Concomitant]
  47. NOVOLIN [Concomitant]
  48. CYANOCOBALAMIN [Concomitant]

REACTIONS (6)
  - CHRONIC OBSTRUCTIVE PULMONARY DISEASE [None]
  - COUGH [None]
  - DYSPNOEA [None]
  - EMPHYSEMA [None]
  - LUNG NEOPLASM [None]
  - WHITE BLOOD CELL COUNT INCREASED [None]
